FAERS Safety Report 4741083-9 (Version None)
Quarter: 2005Q3

REPORT INFORMATION
  Report Type: 
  Country: None (occurrence: None)
  Receive Date: 20050810
  Receipt Date: 20050714
  Transmission Date: 20060218
  Serious: Yes (Other)
  Sender: FDA-Public Use
  Company Number: AU-ROCHE-410831

PATIENT
  Age: 25 Year
  Sex: Female

DRUGS (2)
  1. ROACCUTANE [Suspect]
     Indication: DRUG USE FOR UNKNOWN INDICATION
     Route: 048
     Dates: start: 20040714, end: 20050415
  2. ROACCUTANE [Suspect]
     Dosage: REPORTED AS 3-4 TIMES PER WEEK
     Route: 048
     Dates: start: 20050415, end: 20050618

REACTIONS (2)
  - NO ADVERSE EFFECT [None]
  - PREGNANCY [None]
